FAERS Safety Report 21840685 (Version 1)
Quarter: 2023Q1

REPORT INFORMATION
  Report Type: Spontaneous
  Country: IT (occurrence: IT)
  Receive Date: 20230110
  Receipt Date: 20230110
  Transmission Date: 20230417
  Serious: Yes (Other)
  Sender: FDA-Public Use
  Company Number: IT-ALKEM LABORATORIES LIMITED-IT-ALKEM-2022-14759

PATIENT
  Age: 36 Year
  Sex: Female

DRUGS (7)
  1. LEVETIRACETAM [Suspect]
     Active Substance: LEVETIRACETAM
     Indication: Seizure
     Dosage: 1750 MILLIGRAMS, QD (PER DAY)
     Route: 065
  2. LEVETIRACETAM [Suspect]
     Active Substance: LEVETIRACETAM
     Dosage: 2500 MILLIGRAMS, QD (PER DAY) 3 DIVIDED DOSES (750 MG AT 8 AM, 750 MG AT 2 PM, 1000 MG AT 8 PM)
     Route: 065
  3. LEVETIRACETAM [Suspect]
     Active Substance: LEVETIRACETAM
     Dosage: 1750 MILLIGRAMS, QD IN 3 DIVIDED DOSES
     Route: 065
  4. LEVETIRACETAM [Suspect]
     Active Substance: LEVETIRACETAM
     Dosage: 3000 MILLIGRAMS, QD (PER DAY) (1000 MG AT 8 AM, 1000 MG AT 2 PM, 1000 MG AT 8 PM)
     Route: 065
  5. LEVETIRACETAM [Suspect]
     Active Substance: LEVETIRACETAM
     Dosage: 3375 MILLIGRAMS, QD (PER DAY)
     Route: 065
  6. FOLIC ACID [Suspect]
     Active Substance: FOLIC ACID
     Indication: Product used for unknown indication
     Dosage: 5 MILLIGRAMS, QD (PER DAY)
     Route: 065
     Dates: start: 2011
  7. INOSITOL [Suspect]
     Active Substance: INOSITOL
     Indication: Neural tube defect
     Dosage: 1000 MG/DAY
     Route: 065

REACTIONS (4)
  - Abortion spontaneous [Unknown]
  - Exposure during pregnancy [Unknown]
  - Seizure [Unknown]
  - Drug clearance increased [Unknown]
